FAERS Safety Report 16584663 (Version 1)
Quarter: 2019Q3

REPORT INFORMATION
  Report Type: Spontaneous
  Country: AT (occurrence: AT)
  Receive Date: 20190717
  Receipt Date: 20190717
  Transmission Date: 20191004
  Serious: Yes (Other)
  Sender: FDA-Public Use
  Company Number: AT-BAUSCH-BL-2019-019621

PATIENT
  Age: 52 Year
  Sex: Male

DRUGS (9)
  1. DOXORUBICIN [Suspect]
     Active Substance: DOXORUBICIN
     Indication: DOUBLE HIT LYMPHOMA
     Dosage: DA-EPOCH-R
     Route: 065
     Dates: start: 20190228
  2. PREDNISONE. [Suspect]
     Active Substance: PREDNISONE
     Indication: DOUBLE HIT LYMPHOMA
     Dosage: DA-EPOCH-R
     Route: 065
     Dates: start: 20190228
  3. VINCRISTINE [Suspect]
     Active Substance: VINCRISTINE
     Indication: DOUBLE HIT LYMPHOMA
     Dosage: DA-EPOCH-R
     Route: 065
     Dates: start: 20190228
  4. CYTARABINE. [Suspect]
     Active Substance: CYTARABINE
     Indication: DOUBLE HIT LYMPHOMA
     Dosage: R-DHAP
     Route: 065
     Dates: start: 20190604
  5. ETOPOSID [Suspect]
     Active Substance: ETOPOSIDE
     Indication: DOUBLE HIT LYMPHOMA
     Dosage: DA-EPOCH-R
     Route: 065
     Dates: start: 20190228
  6. DEXAMETHASONE. [Suspect]
     Active Substance: DEXAMETHASONE
     Indication: DOUBLE HIT LYMPHOMA
     Dosage: R-DHAP
     Route: 065
     Dates: start: 20190604
  7. CISPLATIN. [Suspect]
     Active Substance: CISPLATIN
     Indication: DOUBLE HIT LYMPHOMA
     Dosage: R-DHAP
     Route: 065
     Dates: start: 20190604
  8. RITUXIMAB. [Suspect]
     Active Substance: RITUXIMAB
     Indication: DOUBLE HIT LYMPHOMA
     Dosage: DA-EPOCH-R, R-DHAP
     Route: 065
     Dates: start: 20190228
  9. CYCLOPHOSPHAMIDE. [Suspect]
     Active Substance: CYCLOPHOSPHAMIDE
     Indication: DOUBLE HIT LYMPHOMA
     Dosage: DA-EPOCH-R
     Route: 065
     Dates: start: 20190228

REACTIONS (3)
  - Febrile neutropenia [Unknown]
  - Acute kidney injury [Unknown]
  - Sepsis [Unknown]
